FAERS Safety Report 23641879 (Version 1)
Quarter: 2024Q1

REPORT INFORMATION
  Report Type: Spontaneous
  Country: JP (occurrence: JP)
  Receive Date: 20240318
  Receipt Date: 20240318
  Transmission Date: 20240409
  Serious: Yes (Other)
  Sender: FDA-Public Use
  Company Number: JP-MSD-M2024-09369

PATIENT
  Age: 63 Year
  Sex: Female

DRUGS (1)
  1. PREVYMIS [Suspect]
     Active Substance: LETERMOVIR
     Indication: Antiviral prophylaxis
     Dosage: 480 MILLIGRAM, QD
     Route: 065

REACTIONS (6)
  - Melaena [Unknown]
  - Cytomegalovirus enterocolitis [Unknown]
  - Decreased appetite [Unknown]
  - Rash [Unknown]
  - Pyrexia [Unknown]
  - Diarrhoea [Unknown]
